FAERS Safety Report 7432470-9 (Version None)
Quarter: 2011Q2

REPORT INFORMATION
  Report Type: 
  Country: None (occurrence: None)
  Receive Date: 20110422
  Receipt Date: 20110419
  Transmission Date: 20111010
  Serious: Yes (Disabling, Other)
  Sender: FDA-Public Use
  Company Number: CA-ABBOTT-11P-028-0708575-00

PATIENT
  Age: 28 Year
  Sex: Male

DRUGS (3)
  1. EPIVAL TABLETS 250MG [Suspect]
     Indication: BIPOLAR DISORDER
     Route: 048
     Dates: start: 20100101
  2. EPIVAL TABLETS 250MG [Suspect]
     Dosage: HS
     Route: 048
  3. OLANZAPINE [Concomitant]
     Indication: PRODUCT USED FOR UNKNOWN INDICATION
     Route: 048

REACTIONS (9)
  - EYE PAIN [None]
  - VISION BLURRED [None]
  - MYALGIA [None]
  - BACK PAIN [None]
  - NEURALGIA [None]
  - PHOTOPHOBIA [None]
  - NECK PAIN [None]
  - CHEST PAIN [None]
  - DIPLOPIA [None]
